FAERS Safety Report 14853009 (Version 2)
Quarter: 2018Q2

REPORT INFORMATION
  Report Type: Spontaneous
  Country: US (occurrence: US)
  Receive Date: 20180507
  Receipt Date: 20180507
  Transmission Date: 20180711
  Serious: No
  Sender: FDA-Public Use
  Company Number: US-TEVA-2018-US-890394

PATIENT
  Sex: Female

DRUGS (1)
  1. AMPHETAMINE [Suspect]
     Active Substance: AMPHETAMINE
     Indication: ATTENTION DEFICIT/HYPERACTIVITY DISORDER
     Route: 065

REACTIONS (5)
  - Drug ineffective [Unknown]
  - Thinking abnormal [Unknown]
  - Attention deficit/hyperactivity disorder [Unknown]
  - Loss of personal independence in daily activities [Unknown]
  - Memory impairment [Unknown]
